FAERS Safety Report 14596028 (Version 1)
Quarter: 2018Q1

REPORT INFORMATION
  Report Type: Spontaneous
  Country: DE (occurrence: DE)
  Receive Date: 20180303
  Receipt Date: 20180303
  Transmission Date: 20180509
  Serious: Yes (Other)
  Sender: FDA-Public Use
  Company Number: DE-AUROBINDO-AUR-APL-2017-36059

PATIENT
  Age: 59 Year
  Sex: Female
  Weight: 91 kg

DRUGS (9)
  1. EZETROL [Suspect]
     Active Substance: EZETIMIBE
     Indication: CORONARY ARTERY DISEASE
     Dosage: UNK ()
     Route: 048
  2. ACETYLSALICYLICSAEURE [Concomitant]
     Dosage: ()
     Route: 048
  3. PANTOPRAZOLE [Concomitant]
     Active Substance: PANTOPRAZOLE
  4. MIFLONIDE [Concomitant]
     Active Substance: BUDESONIDE
  5. VALSARTAN. [Concomitant]
     Active Substance: VALSARTAN
  6. ATORVASTATIN [Suspect]
     Active Substance: ATORVASTATIN
     Indication: LIPID METABOLISM DISORDER
     Dosage: UNK
     Route: 048
     Dates: start: 20151217, end: 20160315
  7. NEBIVOLOL. [Concomitant]
     Active Substance: NEBIVOLOL
  8. SIMVASTATIN. [Suspect]
     Active Substance: SIMVASTATIN
     Indication: CORONARY ARTERY DISEASE
     Dosage: UNK ()
     Route: 048
     Dates: end: 20151201
  9. RANEXA [Concomitant]
     Active Substance: RANOLAZINE

REACTIONS (2)
  - Alveolitis allergic [Recovered/Resolved]
  - Drug intolerance [Unknown]

NARRATIVE: CASE EVENT DATE: 20160315
